FAERS Safety Report 6431819-3 (Version None)
Quarter: 2009Q4

REPORT INFORMATION
  Report Type: 
  Country: None (occurrence: None)
  Receive Date: 20091104
  Receipt Date: 20091028
  Transmission Date: 20100525
  Serious: Yes (Hospitalization)
  Sender: FDA-Public Use
  Company Number: SPV1-2009-02148

PATIENT

DRUGS (1)
  1. FOSRENOL [Suspect]
     Dosage: ORAL
     Route: 048

REACTIONS (3)
  - COMPUTERISED TOMOGRAM ABNORMAL [None]
  - LARGE INTESTINE PERFORATION [None]
  - PERITONITIS [None]
